FAERS Safety Report 16377805 (Version 1)
Quarter: 2019Q2

REPORT INFORMATION
  Report Type: Spontaneous
  Country: US (occurrence: US)
  Receive Date: 20190425
  Receipt Date: 20190425
  Transmission Date: 20190711
  Serious: No
  Sender: FDA-Public Use
  Company Number: None

PATIENT
  Sex: Female

DRUGS (1)
  1. XELJANZ [Suspect]
     Active Substance: TOFACITINIB CITRATE
     Indication: MYOCARDITIS
     Route: 048
     Dates: start: 20190215

REACTIONS (7)
  - Anxiety [None]
  - Fatigue [None]
  - Back pain [None]
  - Arthralgia [None]
  - Dizziness [None]
  - Mood swings [None]
  - Joint stiffness [None]
